FAERS Safety Report 24897769 (Version 1)
Quarter: 2025Q1

REPORT INFORMATION
  Report Type: Spontaneous
  Country: TR (occurrence: None)
  Receive Date: 20250129
  Receipt Date: 20250129
  Transmission Date: 20250409
  Serious: Yes (Other)
  Sender: CMP PHARMA
  Company Number: TR-CMPPHARMA-000471

PATIENT
  Age: 42 Year
  Sex: Male

DRUGS (1)
  1. TRIANEX [Suspect]
     Active Substance: TRIAMCINOLONE ACETONIDE
     Indication: Macular oedema

REACTIONS (2)
  - Central serous chorioretinopathy [Unknown]
  - Off label use [Unknown]
